FAERS Safety Report 24778914 (Version 1)
Quarter: 2024Q4

REPORT INFORMATION
  Report Type: Report from Study
  Country: KR (occurrence: KR)
  Receive Date: 20241226
  Receipt Date: 20241226
  Transmission Date: 20250114
  Serious: Yes (Other)
  Sender: JOHNSON AND JOHNSON
  Company Number: KR-JNJFOC-20241273207

PATIENT
  Age: 59 Year
  Sex: Male

DRUGS (1)
  1. LAZERTINIB [Suspect]
     Active Substance: LAZERTINIB
     Indication: Non-small cell lung cancer
     Route: 048
     Dates: start: 20220707, end: 20231219

REACTIONS (4)
  - Neuropathy peripheral [Recovering/Resolving]
  - Chest discomfort [Recovered/Resolved]
  - Paronychia [Not Recovered/Not Resolved]
  - Liver function test increased [Recovered/Resolved]

NARRATIVE: CASE EVENT DATE: 20220906
